FAERS Safety Report 7204009-4 (Version None)
Quarter: 2010Q4

REPORT INFORMATION
  Report Type: 
  Country: None (occurrence: None)
  Receive Date: 20101220
  Receipt Date: 20101208
  Transmission Date: 20110411
  Serious: Yes (Hospitalization)
  Sender: FDA-Public Use
  Company Number: TCI2010A04073

PATIENT
  Age: 68 Year
  Sex: Female

DRUGS (8)
  1. ACTOS [Suspect]
     Indication: TYPE 2 DIABETES MELLITUS
     Dosage: 15 MG (15 MG, 1 D)
     Route: 048
     Dates: start: 20091204, end: 20100119
  2. BASEN (VOGLIBOSE) [Concomitant]
  3. CALBLOCK (AZELNIDIPINE) [Concomitant]
  4. OLMETEC (OLMESARTAN MEDOXOMIL) [Concomitant]
  5. CRESTOR [Concomitant]
  6. PLETAL [Concomitant]
  7. ASPIRIN [Concomitant]
  8. LANSOPRAZOLE OD TAIYO (LANSOPRAZOLE) [Concomitant]

REACTIONS (2)
  - CEREBRAL INFARCTION [None]
  - HEMIPLEGIA [None]
